FAERS Safety Report 10565756 (Version 1)
Quarter: 2014Q4

REPORT INFORMATION
  Report Type: Spontaneous
  Country: US (occurrence: None)
  Receive Date: 20141103
  Receipt Date: 20141103
  Transmission Date: 20150529
  Serious: Yes (Other)
  Sender: FDA-Public Use
  Company Number: NSR_01654_2014

PATIENT
  Age: 49 Year
  Sex: Male

DRUGS (3)
  1. ATENOLOL. [Suspect]
     Active Substance: ATENOLOL
     Indication: HYPERTENSION
     Dosage: UNKNOWN UNTIL NOT CONTINUING ) THERAPY DATES
  2. HYDROCHLOROTHIAZIDE. [Suspect]
     Active Substance: HYDROCHLOROTHIAZIDE
     Indication: HYPERTENSION
     Dosage: (UNKNOWN UNTIL NOT CONTINUING) THERAPY DATESS
  3. LOSARTAN [Suspect]
     Active Substance: LOSARTAN
     Indication: HYPERTENSION
     Dosage: (UNKNOWN UNTIL NOT CONTINUING) THERAPY DATES

REACTIONS (3)
  - Blood glucose increased [None]
  - Erectile dysfunction [None]
  - Alanine aminotransferase increased [None]
